FAERS Safety Report 6367716-1 (Version None)
Quarter: 2009Q3

REPORT INFORMATION
  Report Type: 
  Country: None (occurrence: None)
  Receive Date: 20090921
  Receipt Date: 20090909
  Transmission Date: 20100115
  Serious: Yes (Hospitalization)
  Sender: FDA-Public Use
  Company Number: PHHY2009AU38450

PATIENT
  Age: 55 Year
  Sex: Male

DRUGS (6)
  1. MYCOPHENOLATE MOFETIL [Suspect]
     Indication: RENAL TRANSPLANT
  2. TACROLIMUS [Suspect]
  3. PREDNISOLONE [Suspect]
  4. VANCOMYCIN [Concomitant]
  5. RIFAMPICIN [Concomitant]
  6. CIPROFLAXACIN [Concomitant]

REACTIONS (11)
  - AORTITIS [None]
  - BACK PAIN [None]
  - DRY GANGRENE [None]
  - FLANK PAIN [None]
  - FLUID RETENTION [None]
  - FUNGAL INFECTION [None]
  - GRANULOMA [None]
  - MYCOTIC ANEURYSM [None]
  - OSTEOMYELITIS ACUTE [None]
  - SUBCUTANEOUS NODULE [None]
  - SURGERY [None]
